FAERS Safety Report 12904332 (Version 3)
Quarter: 2016Q4

REPORT INFORMATION
  Report Type: Spontaneous
  Country: US (occurrence: US)
  Receive Date: 20161102
  Receipt Date: 20161213
  Transmission Date: 20170207
  Serious: Yes (Death, Other)
  Sender: FDA-Public Use
  Company Number: US-CELGENEUS-USA-2016108669

PATIENT
  Age: 79 Year
  Sex: Female

DRUGS (4)
  1. THALOMID [Suspect]
     Active Substance: THALIDOMIDE
     Dosage: 100MG
     Route: 048
     Dates: start: 20151204
  2. THALOMID [Suspect]
     Active Substance: THALIDOMIDE
     Indication: PLASMA CELL MYELOMA
     Dosage: 100MG
     Route: 048
     Dates: start: 201312
  3. THALOMID [Suspect]
     Active Substance: THALIDOMIDE
     Dosage: 50MG
     Route: 048
     Dates: start: 201601
  4. THALOMID [Suspect]
     Active Substance: THALIDOMIDE
     Dosage: 200-100MG
     Route: 048
     Dates: start: 201401

REACTIONS (1)
  - Lung cancer metastatic [Fatal]

NARRATIVE: CASE EVENT DATE: 20161028
